FAERS Safety Report 8997431 (Version 1)
Quarter: 2013Q1

REPORT INFORMATION
  Report Type: Spontaneous
  Country: US (occurrence: US)
  Receive Date: 20130104
  Receipt Date: 20130104
  Transmission Date: 20140127
  Serious: Yes (Other)
  Sender: FDA-Public Use
  Company Number: US-PFIZER INC-2013003462

PATIENT
  Age: 54 Year
  Sex: Female
  Weight: 52.15 kg

DRUGS (3)
  1. CHANTIX [Suspect]
     Indication: SMOKING CESSATION THERAPY
     Dosage: UNK
     Route: 048
  2. CELEXA [Concomitant]
     Indication: DEPRESSION
     Dosage: UNK
  3. KLONOPIN [Concomitant]
     Indication: ANXIETY
     Dosage: UNK

REACTIONS (3)
  - Kidney infection [Recovered/Resolved]
  - Cystitis [Recovered/Resolved]
  - Abnormal dreams [Recovered/Resolved]
